FAERS Safety Report 7340159-X (Version None)
Quarter: 2011Q1

REPORT INFORMATION
  Report Type: 
  Country: None (occurrence: None)
  Receive Date: 20110309
  Receipt Date: 20110228
  Transmission Date: 20110831
  Serious: Yes (Other)
  Sender: FDA-Public Use
  Company Number: GB-JNJFOC-20091205568

PATIENT
  Age: 17 Year
  Sex: Male

DRUGS (20)
  1. RITUXIMAB [Suspect]
     Indication: BURKITT'S LYMPHOMA
     Route: 065
  2. ONCOVIN [Suspect]
     Indication: BURKITT'S LYMPHOMA
     Route: 065
  3. ETOPOSIDE [Suspect]
     Indication: ILL-DEFINED DISORDER
     Route: 065
  4. ACYCLOVIR [Suspect]
     Indication: PROPHYLAXIS
     Route: 065
  5. CYCLOPHOSPHAMIDE [Suspect]
     Indication: ILL-DEFINED DISORDER
     Route: 065
  6. PREDNISONE [Concomitant]
     Indication: ILL-DEFINED DISORDER
     Route: 065
  7. DEXRAZOXANE [Suspect]
     Indication: ILL-DEFINED DISORDER
     Route: 065
  8. ITRACONAZOLE [Suspect]
     Indication: PROPHYLAXIS
     Route: 065
  9. ARA-C [Suspect]
     Indication: BURKITT'S LYMPHOMA
     Route: 065
  10. CAELYX [Suspect]
     Indication: BURKITT'S LYMPHOMA
     Route: 042
  11. VINCRISTINE [Suspect]
     Indication: BURKITT'S LYMPHOMA
     Route: 065
  12. THIOGUANINE [Suspect]
     Indication: BURKITT'S LYMPHOMA
     Route: 065
  13. METHOTREXATE [Suspect]
     Indication: BURKITT'S LYMPHOMA
     Route: 024
  14. PREDNISOLONE [Suspect]
     Indication: BURKITT'S LYMPHOMA
     Route: 065
  15. MERCAPTOPURINE [Suspect]
     Indication: BURKITT'S LYMPHOMA
     Route: 065
  16. VP-16 [Suspect]
     Indication: BURKITT'S LYMPHOMA
     Route: 065
  17. COTRIM [Suspect]
     Indication: PROPHYLAXIS
     Route: 065
  18. DOXORUBICIN [Suspect]
     Indication: BURKITT'S LYMPHOMA
     Route: 065
  19. TACROLIMUS [Suspect]
     Indication: IMMUNOSUPPRESSION
     Route: 065
  20. MERCAPTOPURINE [Suspect]
     Indication: ILL-DEFINED DISORDER
     Route: 065

REACTIONS (2)
  - NEUTROPENIA [None]
  - RENAL IMPAIRMENT [None]
